FAERS Safety Report 19349894 (Version 1)
Quarter: 2021Q2

REPORT INFORMATION
  Report Type: Report from Study
  Country: CA (occurrence: CA)
  Receive Date: 20210531
  Receipt Date: 20210531
  Transmission Date: 20210717
  Serious: Yes (Hospitalization, Other)
  Sender: FDA-Public Use
  Company Number: CA-JNJFOC-20201215845

PATIENT
  Age: 60 Year
  Sex: Female

DRUGS (20)
  1. ADCIRCA [Concomitant]
     Active Substance: TADALAFIL
  2. ATROVENT [Concomitant]
     Active Substance: IPRATROPIUM BROMIDE
  3. HYDROMORPHONE [Concomitant]
     Active Substance: HYDROMORPHONE
  4. FLOVENT [Concomitant]
     Active Substance: FLUTICASONE PROPIONATE
  5. SERTRALINE [Concomitant]
     Active Substance: SERTRALINE HYDROCHLORIDE
  6. LASIX [Concomitant]
     Active Substance: FUROSEMIDE
  7. OXYGEN. [Concomitant]
     Active Substance: OXYGEN
  8. VENTOLIN [Concomitant]
     Active Substance: ALBUTEROL SULFATE
  9. UPTRAVI [Suspect]
     Active Substance: SELEXIPAG
     Indication: PULMONARY HYPERTENSION
     Route: 048
     Dates: start: 20171023
  10. TRACLEER [Suspect]
     Active Substance: BOSENTAN
     Indication: PULMONARY HYPERTENSION
     Route: 048
     Dates: start: 20150803
  11. PREGABALIN. [Concomitant]
     Active Substance: PREGABALIN
  12. KCL [Concomitant]
     Active Substance: POTASSIUM CHLORIDE
  13. CYMBALTA [Concomitant]
     Active Substance: DULOXETINE HYDROCHLORIDE
  14. UPTRAVI [Suspect]
     Active Substance: SELEXIPAG
     Dosage: 1000 MCG MORNING AND 1200 MCG AFTERNOON
     Route: 048
  15. UPTRAVI [Suspect]
     Active Substance: SELEXIPAG
     Route: 048
  16. METFORMIN [Concomitant]
     Active Substance: METFORMIN HYDROCHLORIDE
  17. LANTUS [Concomitant]
     Active Substance: INSULIN GLARGINE
  18. ROSUVASTATIN. [Concomitant]
     Active Substance: ROSUVASTATIN
  19. SALBUTAMOL [Concomitant]
     Active Substance: ALBUTEROL
  20. XARELTO [Concomitant]
     Active Substance: RIVAROXABAN

REACTIONS (9)
  - Joint swelling [Not Recovered/Not Resolved]
  - Body temperature fluctuation [Not Recovered/Not Resolved]
  - Fluid retention [Unknown]
  - Dyspnoea [Not Recovered/Not Resolved]
  - Confusional state [Not Recovered/Not Resolved]
  - Pain [Unknown]
  - Fatigue [Not Recovered/Not Resolved]
  - Somnolence [Recovering/Resolving]
  - Chills [Not Recovered/Not Resolved]

NARRATIVE: CASE EVENT DATE: 202009
